FAERS Safety Report 8153296-7 (Version None)
Quarter: 2012Q1

REPORT INFORMATION
  Report Type: 
  Country: None (occurrence: None)
  Receive Date: 20120221
  Receipt Date: 20120208
  Transmission Date: 20120608
  Serious: Yes (Other)
  Sender: FDA-Public Use
  Company Number: US-ELI_LILLY_AND_COMPANY-US201202003251

PATIENT
  Age: 20 Year
  Sex: Female

DRUGS (3)
  1. CELEXA [Concomitant]
     Indication: DEPRESSION
  2. STRATTERA [Suspect]
     Indication: ATTENTION DEFICIT/HYPERACTIVITY DISORDER
     Dosage: 18 MG, UNK
     Dates: start: 20110701, end: 20110801
  3. STRATTERA [Suspect]
     Dosage: 25 MG, BID

REACTIONS (1)
  - SUICIDAL IDEATION [None]
